FAERS Safety Report 21850331 (Version 1)
Quarter: 2023Q1

REPORT INFORMATION
  Report Type: Spontaneous
  Country: US (occurrence: US)
  Receive Date: 20230111
  Receipt Date: 20230111
  Transmission Date: 20230418
  Serious: No
  Sender: FDA-Public Use
  Company Number: US-SANOFI-01435753

PATIENT
  Age: 86 Year
  Sex: Male

DRUGS (1)
  1. DUPIXENT [Suspect]
     Active Substance: DUPILUMAB
     Indication: Psoriasis
     Dosage: 300 MG

REACTIONS (5)
  - Discomfort [Unknown]
  - Balance disorder [Unknown]
  - Dizziness [Unknown]
  - Product use in unapproved indication [Unknown]
  - Product preparation error [Unknown]
